FAERS Safety Report 15470148 (Version 2)
Quarter: 2018Q4

REPORT INFORMATION
  Report Type: Report from Study
  Country: US (occurrence: US)
  Receive Date: 20181005
  Receipt Date: 20181015
  Transmission Date: 20190205
  Serious: No
  Sender: FDA-Public Use
  Company Number: US-ASTRAZENECA-2018SF27329

PATIENT

DRUGS (1)
  1. TAGRISSO [Suspect]
     Active Substance: OSIMERTINIB
     Indication: NON-SMALL CELL LUNG CANCER
     Route: 048

REACTIONS (5)
  - Mouth ulceration [Unknown]
  - Stomatitis [Unknown]
  - Acne [Unknown]
  - Disturbance in attention [Unknown]
  - Vision blurred [Unknown]

NARRATIVE: CASE EVENT DATE: 20180817
